FAERS Safety Report 9423212 (Version 1)
Quarter: 2013Q3

REPORT INFORMATION
  Report Type: Spontaneous
  Country: US (occurrence: US)
  Receive Date: 20130726
  Receipt Date: 20130726
  Transmission Date: 20140515
  Serious: No
  Sender: FDA-Public Use
  Company Number: US-009507513-1307USA013760

PATIENT
  Sex: Female

DRUGS (2)
  1. MIRALAX [Suspect]
     Indication: PRODUCT USED FOR UNKNOWN INDICATION
     Dosage: UNK
     Route: 048
  2. METAMUCIL [Concomitant]
     Indication: CONSTIPATION
     Route: 048

REACTIONS (3)
  - Fall [Unknown]
  - Spinal column injury [Unknown]
  - Bowel movement irregularity [Unknown]
